FAERS Safety Report 7597823-7 (Version None)
Quarter: 2011Q3

REPORT INFORMATION
  Report Type: 
  Country: None (occurrence: None)
  Receive Date: 20110708
  Receipt Date: 20110627
  Transmission Date: 20111222
  Serious: Yes (Other)
  Sender: FDA-Public Use
  Company Number: JP-SANOFI-AVENTIS-2011SA041991

PATIENT
  Age: 50 Year
  Sex: Male

DRUGS (4)
  1. OXALIPLATIN [Suspect]
     Indication: RECTOSIGMOID CANCER METASTATIC
     Route: 041
     Dates: start: 20080901
  2. LEUCOVORIN CALCIUM [Concomitant]
     Indication: RECTOSIGMOID CANCER METASTATIC
     Route: 065
     Dates: start: 20080901
  3. FLUOROURACIL [Concomitant]
     Indication: RECTOSIGMOID CANCER METASTATIC
     Route: 065
     Dates: start: 20080901
  4. AVASTIN [Suspect]
     Indication: RECTOSIGMOID CANCER METASTATIC
     Route: 041

REACTIONS (4)
  - PLATELET COUNT DECREASED [None]
  - VOMITING [None]
  - HYPOAESTHESIA [None]
  - SPLENOMEGALY [None]
